FAERS Safety Report 14627631 (Version 1)
Quarter: 2018Q1

REPORT INFORMATION
  Report Type: Report from Study
  Country: ES (occurrence: ES)
  Receive Date: 20180312
  Receipt Date: 20180312
  Transmission Date: 20180509
  Serious: Yes (Hospitalization)
  Sender: FDA-Public Use
  Company Number: ES-PFIZER INC-2018094010

PATIENT
  Age: 76 Year
  Sex: Male

DRUGS (6)
  1. 5-FU /00098801/ [Suspect]
     Active Substance: FLUOROURACIL
     Indication: COLORECTAL CANCER METASTATIC
     Route: 041
     Dates: start: 20151026, end: 20151026
  2. AFLIBERCEPT [Suspect]
     Active Substance: AFLIBERCEPT
     Indication: COLORECTAL CANCER METASTATIC
     Route: 041
     Dates: start: 20151026, end: 20151026
  3. OMEPRAZOLE. [Concomitant]
     Active Substance: OMEPRAZOLE
     Indication: PROPHYLAXIS
     Route: 065
  4. IRINOTECAN HCL [Suspect]
     Active Substance: IRINOTECAN HYDROCHLORIDE
     Indication: COLORECTAL CANCER METASTATIC
     Route: 041
     Dates: start: 20151026, end: 20151026
  5. LEUCOVORIN /00566701/ [Suspect]
     Active Substance: LEUCOVORIN
     Indication: COLORECTAL CANCER METASTATIC
     Route: 041
     Dates: start: 20151026, end: 20151026
  6. 5-FU /00098801/ [Suspect]
     Active Substance: FLUOROURACIL
     Dosage: 576 MG, CYCLIC
     Route: 040
     Dates: start: 20151026, end: 20151026

REACTIONS (6)
  - Abdominal pain [Recovering/Resolving]
  - Constipation [Recovering/Resolving]
  - Rectal haemorrhage [Recovering/Resolving]
  - Decreased appetite [Recovering/Resolving]
  - Cholecystitis [Recovered/Resolved]
  - Asthenia [Recovering/Resolving]

NARRATIVE: CASE EVENT DATE: 20151027
